FAERS Safety Report 22661163 (Version 1)
Quarter: 2023Q2

REPORT INFORMATION
  Report Type: Spontaneous
  Country: US (occurrence: US)
  Receive Date: 20230630
  Receipt Date: 20230630
  Transmission Date: 20230722
  Serious: No
  Sender: FDA-Public Use
  Company Number: US-Blueprint Medicines Corporation-1233

PATIENT
  Sex: Female

DRUGS (2)
  1. AYVAKIT [Suspect]
     Active Substance: AVAPRITINIB
     Indication: Systemic mastocytosis
     Dosage: 75MG DAILY
     Route: 065
  2. AYVAKIT [Suspect]
     Active Substance: AVAPRITINIB
     Dosage: 75MG DAILY
     Route: 065

REACTIONS (5)
  - Limb injury [Unknown]
  - Fall [Unknown]
  - Weight increased [Unknown]
  - Nausea [Recovered/Resolved]
  - Rotator cuff syndrome [Unknown]
